FAERS Safety Report 9840748 (Version 2)
Quarter: 2014Q1

REPORT INFORMATION
  Report Type: Spontaneous
  Country: VE (occurrence: VE)
  Receive Date: 20140124
  Receipt Date: 20140203
  Transmission Date: 20141002
  Serious: Yes (Death, Hospitalization)
  Sender: FDA-Public Use
  Company Number: VE-AMGEN-VENSP2014004169

PATIENT
  Age: 67 Year
  Sex: Male

DRUGS (2)
  1. VECTIBIX [Suspect]
     Indication: PROSTATE CANCER
     Dosage: (3 AMPOULES) 3 UNITS IN EACH INFUSION EVERY FIFTEEN DAYS
     Route: 042
     Dates: start: 20131119, end: 201312
  2. VECTIBIX [Suspect]
     Indication: METASTASES TO LIVER

REACTIONS (4)
  - Respiratory arrest [Fatal]
  - Jaundice [Unknown]
  - Asthenia [Unknown]
  - Constipation [Unknown]
